FAERS Safety Report 6326908-8 (Version None)
Quarter: 2009Q3

REPORT INFORMATION
  Report Type: 
  Country: None (occurrence: None)
  Receive Date: 20090825
  Receipt Date: 20090816
  Transmission Date: 20100115
  Serious: Yes (Other)
  Sender: FDA-Public Use
  Company Number: US-PFIZER INC-2009256087

PATIENT
  Sex: Male
  Weight: 86.168 kg

DRUGS (3)
  1. CELEBREX [Suspect]
     Indication: SPINAL OSTEOARTHRITIS
     Dosage: FREQUENCY: 1X/DAY,
     Route: 048
     Dates: start: 20090806, end: 20090814
  2. LOTENSIN HCT [Concomitant]
     Route: 048
     Dates: start: 20070101
  3. LIPITOR [Concomitant]
     Indication: BLOOD CHOLESTEROL INCREASED
     Route: 048

REACTIONS (4)
  - DYSPHAGIA [None]
  - RASH ERYTHEMATOUS [None]
  - SKIN PAPILLOMA [None]
  - SWELLING FACE [None]
